FAERS Safety Report 4726937-1 (Version None)
Quarter: 2005Q3

REPORT INFORMATION
  Report Type: 
  Country: None (occurrence: None)
  Receive Date: 20050725
  Receipt Date: 20050725
  Transmission Date: 20060218
  Serious: Yes (Life-Threatening)
  Sender: FDA-Public Use
  Company Number: None

PATIENT
  Age: 26 Year
  Sex: Male
  Weight: 113.3993 kg

DRUGS (2)
  1. PAXIL [Suspect]
     Dosage: 10MG   1/DAY   ORAL
     Route: 048
     Dates: start: 20040411, end: 20040609
  2. PAXIL [Suspect]
     Dosage: 20MG   1/DAY   ORAL
     Route: 048
     Dates: start: 20040610, end: 20040629

REACTIONS (3)
  - AKATHISIA [None]
  - HALLUCINATION, AUDITORY [None]
  - SUICIDE ATTEMPT [None]
